FAERS Safety Report 21165426 (Version 3)
Quarter: 2022Q3

REPORT INFORMATION
  Report Type: Report from Study
  Country: FR (occurrence: FR)
  Receive Date: 20220803
  Receipt Date: 20220819
  Transmission Date: 20221027
  Serious: Yes (Other)
  Sender: FDA-Public Use
  Company Number: FR-TAKEDA-2022TUS051369

PATIENT
  Sex: Female

DRUGS (5)
  1. HUMAN IMMUNOGLOBULIN G [Suspect]
     Active Substance: HUMAN IMMUNOGLOBULIN G
     Indication: Primary immunodeficiency syndrome
     Dosage: UNK
     Route: 065
     Dates: start: 200705
  2. GAMMAGARD S/D [Suspect]
     Active Substance: HUMAN IMMUNOGLOBULIN G
     Indication: Primary immunodeficiency syndrome
     Dosage: 40 GRAM, Q3WEEKS
     Route: 042
     Dates: start: 2005
  3. GAMMAGARD S/D [Suspect]
     Active Substance: HUMAN IMMUNOGLOBULIN G
     Indication: Primary immunodeficiency syndrome
     Dosage: 40 GRAM, Q3WEEKS
     Route: 042
     Dates: start: 2005
  4. GAMMAGARD S/D [Suspect]
     Active Substance: HUMAN IMMUNOGLOBULIN G
     Dosage: 40 GRAM, Q3WEEKS
     Route: 042
  5. GAMMAGARD S/D [Suspect]
     Active Substance: HUMAN IMMUNOGLOBULIN G
     Dosage: 40 GRAM, Q3WEEKS
     Route: 042

REACTIONS (30)
  - Anaphylactic shock [Unknown]
  - Hepatic fibrosis [Unknown]
  - Internal haemorrhage [Unknown]
  - Neoplasm malignant [Unknown]
  - Headache [Unknown]
  - Fatigue [Unknown]
  - Sinus disorder [Unknown]
  - Hepatomegaly [Unknown]
  - Granuloma [Unknown]
  - Splenomegaly [Unknown]
  - Tremor [Unknown]
  - Pyrexia [Unknown]
  - Hypertension [Unknown]
  - Poor venous access [Unknown]
  - Food poisoning [Unknown]
  - Gluten sensitivity [Unknown]
  - Reaction to preservatives [Unknown]
  - Diarrhoea [Unknown]
  - Adverse drug reaction [Unknown]
  - Abdominal discomfort [Unknown]
  - Varices oesophageal [Unknown]
  - Incorrect drug administration rate [Unknown]
  - Hypersensitivity [Unknown]
  - Nasopharyngitis [Unknown]
  - Gastrointestinal disorder [Unknown]
  - Gastrointestinal infection [Unknown]
  - Depression [Unknown]
  - Contusion [Unknown]
  - Haemophilia [Unknown]
  - Sinusitis [Unknown]
